FAERS Safety Report 6674416-7 (Version None)
Quarter: 2010Q2

REPORT INFORMATION
  Report Type: 
  Country: None (occurrence: None)
  Receive Date: 20100409
  Receipt Date: 20100331
  Transmission Date: 20101027
  Serious: Yes (Hospitalization)
  Sender: FDA-Public Use
  Company Number: JP-JNJFOC-20091003768

PATIENT
  Sex: Male
  Weight: 56 kg

DRUGS (21)
  1. REMICADE [Suspect]
     Indication: BEHCET'S SYNDROME
     Route: 042
     Dates: start: 20070822, end: 20080805
  2. REMICADE [Suspect]
     Route: 042
     Dates: start: 20070822, end: 20080805
  3. REMICADE [Suspect]
     Route: 042
     Dates: start: 20070822, end: 20080805
  4. REMICADE [Suspect]
     Route: 042
     Dates: start: 20070822, end: 20080805
  5. REMICADE [Suspect]
     Route: 042
     Dates: start: 20070822, end: 20080805
  6. REMICADE [Suspect]
     Route: 042
     Dates: start: 20070822, end: 20080805
  7. REMICADE [Suspect]
     Route: 042
     Dates: start: 20070822, end: 20080805
  8. REMICADE [Suspect]
     Route: 042
     Dates: start: 20070822, end: 20080805
  9. REMICADE [Suspect]
     Route: 042
     Dates: start: 20070822, end: 20080805
  10. ISCOTIN [Suspect]
     Indication: ANTIBIOTIC PROPHYLAXIS
     Route: 048
  11. KENACORT [Concomitant]
     Indication: BEHCET'S SYNDROME
     Dosage: BOTH EYES
     Route: 047
  12. KENACORT [Concomitant]
     Route: 047
  13. KENACORT [Concomitant]
     Dosage: BOTH EYES
     Route: 047
  14. KENACORT [Concomitant]
     Dosage: LEFT EYE
     Route: 047
  15. KENACORT [Concomitant]
     Dosage: RIGHT EYE
     Route: 047
  16. KENACORT [Concomitant]
     Dosage: LEFT EYE
     Route: 047
  17. KENACORT [Concomitant]
     Dosage: RIGHT EYE
     Route: 047
  18. NEUROVITAN [Concomitant]
     Indication: PROPHYLAXIS
     Route: 048
  19. COLCHICINE [Concomitant]
     Indication: BEHCET'S SYNDROME
     Route: 048
  20. NEORAL [Concomitant]
     Indication: BEHCET'S SYNDROME
     Route: 048
  21. NEORAL [Concomitant]
     Route: 048

REACTIONS (1)
  - HERPES ZOSTER DISSEMINATED [None]
